FAERS Safety Report 12604352 (Version 1)
Quarter: 2016Q3

REPORT INFORMATION
  Report Type: Report from Study
  Country: GB (occurrence: GB)
  Receive Date: 20160728
  Receipt Date: 20160728
  Transmission Date: 20161109
  Serious: Yes (Other)
  Sender: FDA-Public Use
  Company Number: PHFR2016GB006032

PATIENT
  Age: 22 Year
  Sex: Female

DRUGS (2)
  1. GILENYA [Suspect]
     Active Substance: FINGOLIMOD HYDROCHLORIDE
     Indication: RELAPSING-REMITTING MULTIPLE SCLEROSIS
     Dosage: 0.5 MG, UNK
     Route: 065
     Dates: start: 20141128
  2. AMITRIPTYLINE [Concomitant]
     Active Substance: AMITRIPTYLINE
     Indication: PRODUCT USED FOR UNKNOWN INDICATION
     Dosage: 10 MG, NOCTE
     Route: 065

REACTIONS (17)
  - Fatigue [Unknown]
  - Influenza [Unknown]
  - Blood pressure systolic increased [Unknown]
  - Dry skin [Unknown]
  - Back pain [Unknown]
  - Muscular weakness [Recovering/Resolving]
  - Nasopharyngitis [Unknown]
  - Limb discomfort [Recovering/Resolving]
  - Irritable bowel syndrome [Unknown]
  - Hangover [Unknown]
  - Abdominal pain [Unknown]
  - Eczema [Unknown]
  - Lymphocyte count decreased [Unknown]
  - Central nervous system lesion [Unknown]
  - Nausea [Unknown]
  - Paraesthesia [Unknown]
  - Pain in extremity [Recovering/Resolving]

NARRATIVE: CASE EVENT DATE: 201507
